FAERS Safety Report 7055598-4 (Version None)
Quarter: 2010Q4

REPORT INFORMATION
  Report Type: 
  Country: None (occurrence: None)
  Receive Date: 20101020
  Receipt Date: 20101020
  Transmission Date: 20110411
  Serious: Yes (Hospitalization, Other)
  Sender: FDA-Public Use
  Company Number: None

PATIENT

DRUGS (2)
  1. ADVAIR DISKUS 250/50 [Suspect]
     Dosage: 250/50 2 PUFFS A DAY, ONE IN AM AND ONE IN PM
     Route: 055
     Dates: start: 20100830
  2. BENADRYL [Concomitant]

REACTIONS (5)
  - PAIN [None]
  - PRODUCT QUALITY ISSUE [None]
  - PRODUCT TASTE ABNORMAL [None]
  - RASH GENERALISED [None]
  - VASCULITIS [None]
